FAERS Safety Report 7443031-X (Version None)
Quarter: 2011Q2

REPORT INFORMATION
  Report Type: 
  Country: None (occurrence: None)
  Receive Date: 20110428
  Receipt Date: 20110414
  Transmission Date: 20111010
  Serious: Yes (Other)
  Sender: FDA-Public Use
  Company Number: US-NAPPMUNDI-USA-2011-0062619

PATIENT
  Sex: Female
  Weight: 115.19 kg

DRUGS (12)
  1. CYMBALTA [Concomitant]
     Indication: PRODUCT USED FOR UNKNOWN INDICATION
     Dosage: 60 MG, BID
  2. TOPROL-XL [Concomitant]
     Indication: BLOOD PRESSURE
  3. XANAX [Concomitant]
     Indication: PRODUCT USED FOR UNKNOWN INDICATION
     Dosage: 2 MG, TID
  4. LOMOTIL [Concomitant]
     Indication: DIARRHOEA
     Dosage: .25 MG, UNK
  5. OXYCONTIN (NDA 22-272) [Suspect]
     Indication: CANCER PAIN
  6. LORTAB [Concomitant]
     Indication: BREAKTHROUGH PAIN
     Dosage: 7.5 MG, Q4H
  7. COUMADIN [Concomitant]
     Indication: PRODUCT USED FOR UNKNOWN INDICATION
     Dosage: 7.5 MG, DAILY
  8. CATAPRES                           /00171101/ [Concomitant]
     Indication: PRODUCT USED FOR UNKNOWN INDICATION
     Dosage: UNK, WEEKLY
     Route: 062
  9. ZANAFLEX [Concomitant]
     Indication: PRODUCT USED FOR UNKNOWN INDICATION
     Dosage: 4 MG, TID
  10. OXYCONTIN (NDA 22-272) [Suspect]
     Indication: PAIN
     Dosage: 320 MG, TID
     Route: 048
     Dates: start: 20100801
  11. LYRICA [Concomitant]
     Indication: PRODUCT USED FOR UNKNOWN INDICATION
     Dosage: 100 MG, TID
  12. NORVASC [Concomitant]
     Indication: PRODUCT USED FOR UNKNOWN INDICATION
     Dosage: 10 MG, DAILY

REACTIONS (20)
  - DRUG INEFFECTIVE [None]
  - LOSS OF CONSCIOUSNESS [None]
  - RETINAL ARTERY EMBOLISM [None]
  - BLINDNESS UNILATERAL [None]
  - PRURITUS [None]
  - MEDICATION RESIDUE [None]
  - RASH [None]
  - ABDOMINAL PAIN UPPER [None]
  - PAIN [None]
  - NAUSEA [None]
  - SOMNOLENCE [None]
  - DRUG EFFECT DECREASED [None]
  - GENERAL PHYSICAL HEALTH DETERIORATION [None]
  - URTICARIA [None]
  - DEPRESSION [None]
  - INFLUENZA LIKE ILLNESS [None]
  - CONVULSION [None]
  - ABDOMINAL DISCOMFORT [None]
  - TRANSIENT ISCHAEMIC ATTACK [None]
  - HEADACHE [None]
